FAERS Safety Report 4636144-9 (Version None)
Quarter: 2005Q2

REPORT INFORMATION
  Report Type: 
  Country: None (occurrence: None)
  Receive Date: 20050325
  Receipt Date: 20041215
  Transmission Date: 20051028
  Serious: No
  Sender: FDA-Public Use
  Company Number: USA040670970

PATIENT
  Age: 62 Year
  Sex: Female
  Weight: 82 kg

DRUGS (10)
  1. FORTEO [Suspect]
     Indication: OSTEOPOROSIS
     Dates: start: 20030901, end: 20041202
  2. SYNTHROID [Concomitant]
  3. PRAVACHOL [Concomitant]
  4. PREVACID [Concomitant]
  5. PROZAC (FLUOXETINE HDYROCHLORIDE) [Concomitant]
  6. VITAMIN A [Concomitant]
  7. VITAMIN D [Concomitant]
  8. VIT C TAB [Concomitant]
  9. VITAMIN E [Concomitant]
  10. FOLIC ACID [Concomitant]

REACTIONS (10)
  - ARTHRALGIA [None]
  - BACK PAIN [None]
  - BONE DENSITY DECREASED [None]
  - CALCIUM METABOLISM DISORDER [None]
  - DIZZINESS [None]
  - HOT FLUSH [None]
  - HYPERHIDROSIS [None]
  - JOINT SWELLING [None]
  - MUSCLE SPASMS [None]
  - MUSCULOSKELETAL STIFFNESS [None]
